FAERS Safety Report 8947758 (Version 1)
Quarter: 2012Q4

REPORT INFORMATION
  Report Type: 
  Country: US (occurrence: US)
  Receive Date: 20121204
  Receipt Date: 20121204
  Transmission Date: 20130627
  Serious: Yes (Other)
  Sender: FDA-Public Use
  Company Number: US-JNJFOC-20121115242

PATIENT
  Age: 7 None
  Sex: Female
  Weight: 81.65 kg

DRUGS (2)
  1. XARELTO [Suspect]
     Indication: THROMBOSIS PROPHYLAXIS
     Route: 048
     Dates: start: 201211
  2. MULTIPLE MEDICATIONS [Concomitant]

REACTIONS (1)
  - Pulmonary embolism [Unknown]
